FAERS Safety Report 8923793 (Version 3)
Quarter: 2012Q4

REPORT INFORMATION
  Report Type: Report from Study
  Country: DE (occurrence: DE)
  Receive Date: 20121126
  Receipt Date: 20121214
  Transmission Date: 20130627
  Serious: Yes (Other)
  Sender: FDA-Public Use
  Company Number: DE-ROCHE-1159542

PATIENT
  Weight: 73 kg

DRUGS (3)
  1. RANIBIZUMAB [Suspect]
     Indication: AGE-RELATED MACULAR DEGENERATION
     Route: 050
     Dates: start: 2008
  2. RANIBIZUMAB [Suspect]
     Route: 050
     Dates: start: 20120620
  3. RANIBIZUMAB [Suspect]
     Route: 050
     Dates: start: 20120801

REACTIONS (3)
  - Retinal cyst [Recovered/Resolved]
  - Choroidal neovascularisation [Unknown]
  - Detachment of retinal pigment epithelium [Not Recovered/Not Resolved]
